FAERS Safety Report 19291126 (Version 2)
Quarter: 2021Q2

REPORT INFORMATION
  Report Type: Spontaneous
  Country: NL (occurrence: NL)
  Receive Date: 20210523
  Receipt Date: 20210528
  Transmission Date: 20210717
  Serious: Yes (Hospitalization, Other)
  Sender: FDA-Public Use
  Company Number: NL-TEVA-2021-NL-1913508

PATIENT
  Age: 67 Year
  Sex: Male
  Weight: 98 kg

DRUGS (4)
  1. CISPLATINE INFUUS / BRAND NAME NOT SPECIFIED [Suspect]
     Active Substance: CISPLATIN
     Indication: NON-HODGKIN^S LYMPHOMA RECURRENT
     Dosage: THERAPY END DATE: ASKU
     Route: 065
     Dates: start: 20210331
  2. RITUXIMAB INFUUS / RITUXIMAB VOOR INFUSIE NVZA [Suspect]
     Active Substance: RITUXIMAB
     Indication: NON-HODGKIN^S LYMPHOMA RECURRENT
     Dosage: THERAPY END DATE: ASKU?RITUXIMAB INFUUS / RITUXIMAB VOOR INFUSIE NVZA
     Route: 065
     Dates: start: 20210331
  3. DEXAMETHASON INJECTIE/INFUUS (BASE) / BRAND NAME NOT SPECIFIED [Suspect]
     Active Substance: DEXAMETHASONE
     Indication: NON-HODGKIN^S LYMPHOMA RECURRENT
     Dosage: THERAPY END DATE :ASKU
     Dates: start: 20210331
  4. CYTARABINE INJECTIE/INFUUS / BRAND NAME NOT SPECIFIED [Suspect]
     Active Substance: CYTARABINE
     Indication: NON-HODGKIN^S LYMPHOMA RECURRENT
     Dosage: INJECTION / INFUSION, THERAPY END DATE: ASKU?CYTARABINE INJECTIE/INFUUS / BRAND NAME NOT SPECIFIED
     Route: 065
     Dates: start: 20210331

REACTIONS (1)
  - Deep vein thrombosis [Not Recovered/Not Resolved]

NARRATIVE: CASE EVENT DATE: 20210419
